FAERS Safety Report 6309240-8 (Version None)
Quarter: 2009Q3

REPORT INFORMATION
  Report Type: 
  Country: None (occurrence: None)
  Receive Date: 20090814
  Receipt Date: 20090804
  Transmission Date: 20100115
  Serious: Yes (Other)
  Sender: FDA-Public Use
  Company Number: JP-PFIZER INC-2009243819

PATIENT
  Age: 69 Year

DRUGS (10)
  1. ZITHROMAX [Suspect]
     Indication: PNEUMONIA MYCOPLASMAL
     Dosage: 500 MG/DAY
     Route: 048
     Dates: start: 20090707
  2. PL GRAN. [Concomitant]
     Route: 048
     Dates: start: 20090707
  3. ASVERIN [Concomitant]
     Route: 048
     Dates: start: 20090707
  4. DASEN [Concomitant]
     Route: 048
     Dates: start: 20090707
  5. DEPAS [Concomitant]
     Route: 048
  6. CERCINE [Concomitant]
     Route: 048
  7. TOFRANIL [Concomitant]
     Route: 048
  8. PRIMPERAN [Concomitant]
     Dates: start: 20090714
  9. CRAVIT [Concomitant]
     Dates: start: 20090701
  10. BETAMETHASONE [Concomitant]
     Dates: start: 20090701

REACTIONS (5)
  - DECREASED APPETITE [None]
  - INSOMNIA [None]
  - OTITIS MEDIA [None]
  - TONGUE DISORDER [None]
  - WEIGHT DECREASED [None]
